FAERS Safety Report 9236237 (Version 3)
Quarter: 2013Q2

REPORT INFORMATION
  Report Type: Report from Study
  Country: US (occurrence: US)
  Receive Date: 20130417
  Receipt Date: 20130510
  Transmission Date: 20140414
  Serious: Yes (Hospitalization)
  Sender: FDA-Public Use
  Company Number: US-PURDUE-USA-2013-0101099

PATIENT
  Sex: Female
  Weight: 72.11 kg

DRUGS (2)
  1. OXYCONTIN (NDA 22-272) [Suspect]
     Indication: NEOPLASM MALIGNANT
     Dosage: 20 MG, Q12H
     Route: 048
  2. OXYCONTIN (NDA 22-272) [Suspect]
     Dosage: 80 MG, Q12H
     Route: 048

REACTIONS (1)
  - Hernia repair [Not Recovered/Not Resolved]
